FAERS Safety Report 9601981 (Version 1)
Quarter: 2013Q4

REPORT INFORMATION
  Report Type: Report from Study
  Country: US (occurrence: US)
  Receive Date: 20131007
  Receipt Date: 20131007
  Transmission Date: 20140711
  Serious: Yes (Hospitalization)
  Sender: FDA-Public Use
  Company Number: PHEH2013US020694

PATIENT
  Sex: Female
  Weight: 54.42 kg

DRUGS (3)
  1. GILENYA [Suspect]
     Indication: MULTIPLE SCLEROSIS
     Dosage: 0.5 MG, QD
     Route: 048
     Dates: start: 20110825
  2. SYNTHROID [Concomitant]
     Dosage: 100 UG, UNK
     Route: 048
  3. VIT D3 [Concomitant]
     Dosage: 2000 U, QD
     Route: 048

REACTIONS (1)
  - Fall [Unknown]
